FAERS Safety Report 18914047 (Version 5)
Quarter: 2021Q3

REPORT INFORMATION
  Report Type: Spontaneous
  Country: JP (occurrence: JP)
  Receive Date: 20210219
  Receipt Date: 20210806
  Transmission Date: 20211014
  Serious: Yes (Death, Life-Threatening, Hospitalization, Other)
  Sender: FDA-Public Use
  Company Number: JP-GLAXOSMITHKLINE-JP2021JPN017488

PATIENT
  Age: 27 Year
  Sex: Male
  Weight: 57.2 kg

DRUGS (54)
  1. TAKECAB [Concomitant]
     Active Substance: VONOPRAZAN FUMARATE
     Indication: TOXOPLASMOSIS
     Dosage: 10 MG, QD
     Dates: start: 20200530, end: 20210130
  2. LOXOPROFEN SODIUM HYDRATE TABLET [Concomitant]
     Dosage: UNK
  3. METOCLOPRAMIDE TABLETS [Concomitant]
     Active Substance: METOCLOPRAMIDE
     Dosage: UNK
  4. LEVOFLOXACIN INTRAVENOUS INFUSION [Concomitant]
     Dosage: UNK
  5. GLUCOSE [Concomitant]
     Active Substance: DEXTROSE
     Dosage: UNK
  6. MEYLON [Concomitant]
     Active Substance: SODIUM BICARBONATE
     Dosage: UNK
  7. VANCOMYCIN HYDROCHLORIDE. [Concomitant]
     Active Substance: VANCOMYCIN HYDROCHLORIDE
     Dosage: UNK
  8. PANTOSIN [Concomitant]
     Active Substance: PANTETHINE
     Dosage: UNK
  9. LUNESTA TABLETS [Concomitant]
     Dosage: UNK
  10. MIDAZOLAM. [Concomitant]
     Active Substance: MIDAZOLAM
     Dosage: UNK
  11. SODIUM PHOSPHATE CORRECTIVE INJECTION [Concomitant]
     Dosage: UNK
  12. CLINDAMYCIN. [Concomitant]
     Active Substance: CLINDAMYCIN
     Indication: TOXOPLASMOSIS
  13. DALACIN [Concomitant]
     Active Substance: CLINDAMYCIN
     Indication: CEREBRAL TOXOPLASMOSIS
     Dosage: 600 MG, TID
     Dates: start: 20200526, end: 20210129
  14. DENOSINE (JAPAN) [Concomitant]
     Active Substance: GANCICLOVIR
     Dosage: UNK
     Dates: start: 20210226, end: 20210318
  15. VITAMEDIN [Concomitant]
     Active Substance: CYANOCOBALAMIN\PYRIDOXINE HYDROCHLORIDE\THIAMINE
     Dosage: UNK
  16. CALCICOL [Concomitant]
     Active Substance: CALCIUM GLUCONATE
     Dosage: UNK
  17. ELNEOPA NO.1 [Concomitant]
     Active Substance: AMINO ACIDS\DEXTROSE\ELECTROLYTES NOS\MINERALS\VITAMINS
     Dosage: UNK
  18. MULTAMIN [Concomitant]
     Active Substance: VITAMINS
     Dosage: UNK
  19. SAMTIREL [Suspect]
     Active Substance: ATOVAQUONE
     Indication: CEREBRAL TOXOPLASMOSIS
  20. LEUCOVORIN. [Concomitant]
     Active Substance: LEUCOVORIN
     Dosage: UNK
  21. FAMOTIDINE. [Concomitant]
     Active Substance: FAMOTIDINE
     Dosage: UNK
  22. ISOTONIC SODIUM CHLORIDE SOLUTION [Concomitant]
     Active Substance: SODIUM CHLORIDE
     Dosage: UNK
  23. GASTER [Concomitant]
     Active Substance: FAMOTIDINE
     Dosage: UNK
  24. KIDMIN [Concomitant]
     Active Substance: AMINO ACIDS\ELECTROLYTES NOS
     Dosage: UNK
  25. SAMTIREL [Suspect]
     Active Substance: ATOVAQUONE
     Indication: ANTIFUNGAL PROPHYLAXIS
     Dosage: 1500 MG, QD
     Route: 048
     Dates: start: 20200526
  26. TRAMAL OD TABLETS [Concomitant]
     Dosage: UNK
  27. SOLDEM 1 [Concomitant]
     Active Substance: DEXTROSE\SODIUM CHLORIDE\SODIUM LACTATE
     Dosage: UNK
  28. POTACOL?R [Concomitant]
     Active Substance: CALCIUM CHLORIDE\MALTOSE\POTASSIUM CHLORIDE\SODIUM CHLORIDE\SODIUM LACTATE
     Dosage: UNK
  29. METOCLOPRAMIDE. [Concomitant]
     Active Substance: METOCLOPRAMIDE
     Dosage: UNK
  30. HAPTOGLOBIN [Concomitant]
     Dosage: UNK
  31. KCL INJECTION [Concomitant]
     Dosage: UNK
  32. NOR?ADRENALIN [Concomitant]
     Dosage: UNK
  33. TIVICAY [Suspect]
     Active Substance: DOLUTEGRAVIR SODIUM
     Indication: HIV INFECTION
     Dosage: 50 MG, QD
     Route: 048
     Dates: start: 20200526, end: 20210129
  34. DESCOVY [Concomitant]
     Active Substance: EMTRICITABINE\TENOFOVIR ALAFENAMIDE FUMARATE
     Indication: HIV INFECTION
     Dosage: 1 DF, QD
     Dates: start: 20200526, end: 20210129
  35. TAKECAB [Concomitant]
     Active Substance: VONOPRAZAN FUMARATE
     Indication: GASTRITIS
  36. CALONAL [Concomitant]
     Active Substance: ACETAMINOPHEN
     Dosage: UNK
  37. PROPOFOL. [Concomitant]
     Active Substance: PROPOFOL
     Dosage: UNK
  38. FUROSEMIDE. [Concomitant]
     Active Substance: FUROSEMIDE
     Dosage: UNK
  39. NOVOLIN R [Concomitant]
     Active Substance: INSULIN HUMAN
     Dosage: UNK
  40. MICAFUNGIN SODIUM [Concomitant]
     Active Substance: MICAFUNGIN SODIUM
     Dosage: UNK
  41. MEROPENEM. [Concomitant]
     Active Substance: MEROPENEM
     Dosage: UNK
  42. SODIUM CHLORIDE. [Concomitant]
     Active Substance: SODIUM CHLORIDE
     Dosage: UNK
  43. ROCURONIUM BROMIDE. [Concomitant]
     Active Substance: ROCURONIUM BROMIDE
     Dosage: UNK
  44. FENTANYL. [Concomitant]
     Active Substance: FENTANYL
     Dosage: UNK
  45. KAYTWO N [Concomitant]
     Active Substance: MENATETRENONE
     Dosage: UNK
  46. KENKETSU GLOVENIN?I?NICHIYAKU [Concomitant]
     Dosage: UNK
  47. LANSOPRAZOLE?OD TABLETS [Concomitant]
     Dosage: UNK
  48. LEVOFLOXACIN TABLETS [Concomitant]
     Active Substance: LEVOFLOXACIN
     Dosage: UNK
  49. WATER SOLUBLE PREDONINE FOR INJECTION [Concomitant]
     Active Substance: PREDNISOLONE SODIUM SUCCINATE
     Dosage: UNK
  50. ACELIO [Concomitant]
     Active Substance: ACETAMINOPHEN
     Dosage: UNK
  51. HORIZON [Concomitant]
     Active Substance: DIAZEPAM
     Dosage: UNK
  52. COAHIBITOR [Concomitant]
     Active Substance: NAFAMOSTAT MESYLATE
     Dosage: UNK
  53. HEPARIN [Concomitant]
     Active Substance: HEPARIN SODIUM
     Dosage: UNK
  54. VOLVIX [Concomitant]
     Dosage: UNK

REACTIONS (17)
  - Cytomegalovirus infection [Recovered/Resolved]
  - Epstein-Barr virus infection [Recovered/Resolved]
  - Depressed level of consciousness [Recovered/Resolved]
  - Hyperbilirubinaemia [Recovered/Resolved]
  - Renal impairment [Recovering/Resolving]
  - Acquired immunodeficiency syndrome [Fatal]
  - Haemophagocytic lymphohistiocytosis [Recovered/Resolved]
  - Pyrexia [Recovered/Resolved]
  - Liver disorder [Recovered/Resolved]
  - Nausea [Recovered/Resolved]
  - Lymphoma [Fatal]
  - Malaise [Recovering/Resolving]
  - Product use in unapproved indication [Unknown]
  - Decreased appetite [Recovered/Resolved]
  - Jaundice [Recovered/Resolved]
  - Off label use [Unknown]
  - Autoimmune haemolytic anaemia [Not Recovered/Not Resolved]

NARRATIVE: CASE EVENT DATE: 20210112
